FAERS Safety Report 11814429 (Version 1)
Quarter: 2015Q4

REPORT INFORMATION
  Report Type: Spontaneous
  Country: US (occurrence: None)
  Receive Date: 20151208
  Receipt Date: 20151208
  Transmission Date: 20160305
  Serious: Yes (Disabling)
  Sender: FDA-Public Use
  Company Number: None

PATIENT
  Age: 43 Year
  Sex: Female
  Weight: 63.5 kg

DRUGS (4)
  1. VENLAFAXINE HCL [Concomitant]
     Active Substance: VENLAFAXINE HYDROCHLORIDE
  2. IMITREX [Concomitant]
     Active Substance: SUMATRIPTAN\SUMATRIPTAN SUCCINATE
  3. SUMATRIPTAN SUCCINATE. [Suspect]
     Active Substance: SUMATRIPTAN SUCCINATE
     Indication: MIGRAINE
     Dosage: 9 TABLETS AS NEEDED TAKEN BY MOUTH
     Route: 048
     Dates: start: 20151204, end: 20151207
  4. TRADER JOE^S WOMEN^S ONCE DAILY MULTIVITAMIN [Concomitant]

REACTIONS (3)
  - Drug ineffective [None]
  - Product measured potency issue [None]
  - Product quality issue [None]

NARRATIVE: CASE EVENT DATE: 20151204
